FAERS Safety Report 8426656-4 (Version None)
Quarter: 2012Q2

REPORT INFORMATION
  Report Type: 
  Country: None (occurrence: None)
  Receive Date: 20120611
  Receipt Date: 20120605
  Transmission Date: 20120825
  Serious: Yes (Hospitalization)
  Sender: FDA-Public Use
  Company Number: US-B.I. PHARMACEUTICALS,INC./RIDGEFIELD-2012-BP-13172BP

PATIENT
  Sex: Male
  Weight: 10 kg

DRUGS (6)
  1. PENNICILLIAN PK [Concomitant]
     Indication: HAEMOLYTIC URAEMIC SYNDROME
     Dosage: 500 MG
  2. CATAPRES-TTS-1 [Suspect]
     Indication: HAEMOLYTIC URAEMIC SYNDROME
     Dosage: 0.3 MG
     Route: 061
  3. AMLODIPINE [Concomitant]
     Indication: HAEMOLYTIC URAEMIC SYNDROME
     Dosage: 10 MG
     Route: 048
  4. LASIX [Concomitant]
     Indication: HAEMOLYTIC URAEMIC SYNDROME
     Route: 048
  5. SOLIRIS [Concomitant]
     Indication: HAEMOLYTIC URAEMIC SYNDROME
     Route: 042
  6. POTASSIUM [Concomitant]
     Indication: HAEMOLYTIC URAEMIC SYNDROME
     Dosage: 98 MEQ

REACTIONS (1)
  - DEHYDRATION [None]
